FAERS Safety Report 6044327-9 (Version None)
Quarter: 2009Q1

REPORT INFORMATION
  Report Type: 
  Country: None (occurrence: None)
  Receive Date: 20090120
  Receipt Date: 20080522
  Transmission Date: 20090719
  Serious: No
  Sender: FDA-Public Use
  Company Number: US-BAYER-200812299BCC

PATIENT
  Age: 69 Year
  Sex: Female
  Weight: 75 kg

DRUGS (6)
  1. ALEVE [Suspect]
     Indication: BACK PAIN
     Dosage: TOTAL DAILY DOSE: 220 MG  UNIT DOSE: 220 MG
     Route: 048
     Dates: start: 20080502, end: 20080502
  2. ALEVE [Suspect]
     Dosage: TOTAL DAILY DOSE: 220 MG  UNIT DOSE: 220 MG
     Route: 048
     Dates: start: 20080518, end: 20080518
  3. ALEVE [Suspect]
     Dosage: TOTAL DAILY DOSE: 220 MG  UNIT DOSE: 220 MG
     Route: 048
     Dates: start: 20080521, end: 20080521
  4. BABY ASPIRIN (WESTERN FAMILY) [Concomitant]
  5. ADVIL LIQUI-GELS [Concomitant]
  6. ESTROVEN [Concomitant]

REACTIONS (3)
  - ERYTHEMA [None]
  - FLUSHING [None]
  - UNEVALUABLE EVENT [None]
